FAERS Safety Report 16139700 (Version 1)
Quarter: 2019Q1

REPORT INFORMATION
  Report Type: Spontaneous
  Country: US (occurrence: US)
  Receive Date: 20190226
  Receipt Date: 20190226
  Transmission Date: 20190418
  Serious: No
  Sender: FDA-Public Use
  Company Number: None

PATIENT
  Age: 74 Year
  Sex: Male
  Weight: 86.18 kg

DRUGS (13)
  1. ROSUVASTATIN CALCIUM. [Concomitant]
     Active Substance: ROSUVASTATIN CALCIUM
  2. MULTIMINERAL [Concomitant]
  3. TURMERIC [Concomitant]
     Active Substance: HERBALS\TURMERIC
  4. DAILY VITAMIN K-2 [Concomitant]
  5. COQ10 (UBIQUINOL) [Concomitant]
  6. LOSARTAN POTASSIUM. [Suspect]
     Active Substance: LOSARTAN POTASSIUM
     Indication: HYPERTENSION
     Route: 048
     Dates: start: 20150910
  7. EZETIMIBE. [Concomitant]
     Active Substance: EZETIMIBE
  8. SAW PALMETTO [Concomitant]
     Active Substance: HERBALS\SAW PALMETTO
  9. CLOPIDOGREL [Concomitant]
     Active Substance: CLOPIDOGREL BISULFATE
  10. ULTIMATE MAN 50+ MULTIVITAMIN [Concomitant]
  11. ASTAXANTHIN [Concomitant]
  12. BETA SITOSTEROL [Concomitant]
  13. D-3 SUPPLEMENT [Concomitant]

REACTIONS (4)
  - Liposarcoma [None]
  - Product contamination [None]
  - Recalled product administered [None]
  - Carcinogenicity [None]
